FAERS Safety Report 9797763 (Version 5)
Quarter: 2014Q1

REPORT INFORMATION
  Report Type: Spontaneous
  Country: AU (occurrence: AU)
  Receive Date: 20140106
  Receipt Date: 20140204
  Transmission Date: 20141002
  Serious: Yes (Death, Life-Threatening, Hospitalization, Other)
  Sender: FDA-Public Use
  Company Number: AU-BAYER-2013-158881

PATIENT
  Age: 49 Year
  Sex: Female

DRUGS (3)
  1. YASMIN [Suspect]
     Indication: ANDROGENETIC ALOPECIA
     Dosage: 1 DF, QD
     Route: 048
     Dates: start: 20070703, end: 20130930
  2. DROSPIRENONE W/ETHINYLESTRADIOL [Suspect]
     Route: 048
  3. ALDACTONE [SPIRONOLACTONE] [Concomitant]
     Indication: ANDROGENETIC ALOPECIA
     Dosage: 100 MG, BID
     Dates: start: 20070703, end: 20130930

REACTIONS (16)
  - Peripheral artery thrombosis [Not Recovered/Not Resolved]
  - Cerebral infarction [Fatal]
  - Dyspnoea [Fatal]
  - Cough [Fatal]
  - Circulatory collapse [Fatal]
  - Depressed level of consciousness [Fatal]
  - Aphasia [Fatal]
  - Diarrhoea [None]
  - Fatigue [None]
  - Vomiting [None]
  - Skin discolouration [None]
  - Vulvovaginal dryness [Not Recovered/Not Resolved]
  - Feeling hot [Not Recovered/Not Resolved]
  - Cardio-respiratory arrest [Fatal]
  - Brain oedema [Fatal]
  - Carotid artery occlusion [Fatal]
